FAERS Safety Report 18238607 (Version 1)
Quarter: 2020Q3

REPORT INFORMATION
  Report Type: Spontaneous
  Country: FR (occurrence: FR)
  Receive Date: 20200907
  Receipt Date: 20200907
  Transmission Date: 20201103
  Serious: Yes (Death)
  Sender: FDA-Public Use
  Company Number: FR-ALLERGAN-2033930US

PATIENT
  Sex: Male
  Weight: 73 kg

DRUGS (5)
  1. ESCITALOPRAM OXALATE ? BP [Suspect]
     Active Substance: ESCITALOPRAM OXALATE
     Indication: PRODUCT USED FOR UNKNOWN INDICATION
     Route: 048
     Dates: start: 2018
  2. PREVISCAN [FLUINDIONE] [Suspect]
     Active Substance: FLUINDIONE
     Indication: AORTIC VALVE DISEASE
     Route: 048
     Dates: start: 200610
  3. OMEPRAZOLE. [Suspect]
     Active Substance: OMEPRAZOLE
     Indication: PRODUCT USED FOR UNKNOWN INDICATION
     Route: 048
     Dates: start: 2006
  4. TAHOR [Suspect]
     Active Substance: ATORVASTATIN CALCIUM
     Indication: HYPERCHOLESTEROLAEMIA
     Route: 048
     Dates: start: 2006
  5. ALFUZOSINE [Suspect]
     Active Substance: ALFUZOSIN HYDROCHLORIDE
     Indication: BENIGN PROSTATIC HYPERPLASIA
     Route: 048
     Dates: start: 2018

REACTIONS (2)
  - Brain stem haematoma [Fatal]
  - Intraventricular haemorrhage [Fatal]

NARRATIVE: CASE EVENT DATE: 20200803
